FAERS Safety Report 4402182-4 (Version None)
Quarter: 2004Q3

REPORT INFORMATION
  Report Type: 
  Country: None (occurrence: None)
  Receive Date: 20040714
  Receipt Date: 20040702
  Transmission Date: 20050211
  Serious: Yes (Hospitalization)
  Sender: FDA-Public Use
  Company Number: US_011075912

PATIENT
  Age: 59 Year
  Sex: Female
  Weight: 64 kg

DRUGS (6)
  1. HUMULIN N [Suspect]
     Indication: DIABETES MELLITUS
     Dosage: 50 U/1 IN THE MORNING
     Dates: start: 19900101, end: 20020613
  2. HUMULIN R [Suspect]
     Indication: DIABETES MELLITUS
     Dosage: 30 U DAY
     Dates: start: 19930101, end: 20020613
  3. HUMALOG [Suspect]
     Dates: start: 20040311
  4. HUMULIN-HUMAN INSULIN (RDNA): 25% LISPRO, 75% NPL (LI [Suspect]
     Indication: DIABETES MELLITUS
     Dosage: 14 U/2 DAY
     Dates: start: 20020613
  5. HUMULIN L [Suspect]
     Dosage: 20 U/3 DAY
  6. LANTUS [Concomitant]

REACTIONS (17)
  - APNOEA [None]
  - BACK INJURY [None]
  - BACK PAIN [None]
  - DIABETES MELLITUS INADEQUATE CONTROL [None]
  - DIZZINESS [None]
  - DRUG INEFFECTIVE [None]
  - FATIGUE [None]
  - FEELING ABNORMAL [None]
  - HYPERTENSION [None]
  - INJECTION SITE PAIN [None]
  - INJECTION SITE RASH [None]
  - MOBILITY DECREASED [None]
  - PAIN [None]
  - PARAESTHESIA [None]
  - SPINAL FRACTURE [None]
  - TREMOR [None]
  - WEIGHT INCREASED [None]
